FAERS Safety Report 4616211-6 (Version None)
Quarter: 2005Q1

REPORT INFORMATION
  Report Type: 
  Country: None (occurrence: None)
  Receive Date: 20050321
  Receipt Date: 20050309
  Transmission Date: 20050727
  Serious: Yes (Hospitalization)
  Sender: FDA-Public Use
  Company Number: 2005042333

PATIENT
  Age: 72 Year
  Sex: Male
  Weight: 68.0396 kg

DRUGS (4)
  1. BEXTRA [Suspect]
     Indication: PAIN
     Dosage: 10 MG (10 MG, 1 IN 1 D), ORAL
     Route: 048
     Dates: start: 20030101
  2. METFORMIN HCL [Concomitant]
  3. GLYBURIDE [Concomitant]
  4. PROPRANOLOL [Concomitant]

REACTIONS (4)
  - DRUG EFFECT DECREASED [None]
  - HEART RATE DECREASED [None]
  - INADEQUATE ANALGESIA [None]
  - MUSCLE STRAIN [None]
